FAERS Safety Report 19963209 (Version 1)
Quarter: 2021Q4

REPORT INFORMATION
  Report Type: Spontaneous
  Country: CH (occurrence: CH)
  Receive Date: 20211018
  Receipt Date: 20211018
  Transmission Date: 20220303
  Serious: Yes (Hospitalization)
  Sender: FDA-Public Use
  Company Number: CH-LUPIN PHARMACEUTICALS INC.-2021-19686

PATIENT
  Age: 38 Year
  Sex: Male

DRUGS (5)
  1. BUPROPION [Suspect]
     Active Substance: BUPROPION
     Indication: Depression
     Dosage: 400 MILLIGRAM, QD
     Route: 065
     Dates: start: 20191107
  2. BUPROPION [Suspect]
     Active Substance: BUPROPION
     Dosage: 1050 MILLIGRAM, QD
     Route: 065
     Dates: start: 20191128
  3. BUPROPION [Suspect]
     Active Substance: BUPROPION
     Dosage: 300 MILLIGRAM, QD
     Route: 065
     Dates: start: 20191217
  4. LITHIUM [Suspect]
     Active Substance: LITHIUM
     Indication: Depression
     Dosage: 36.5 MILLIMOLE, QD
     Route: 065
  5. TRAZODONE [Suspect]
     Active Substance: TRAZODONE HYDROCHLORIDE
     Indication: Depression
     Dosage: 200 MILLIGRAM, QD
     Route: 065

REACTIONS (1)
  - Drug ineffective [Unknown]
